FAERS Safety Report 4871706-5 (Version None)
Quarter: 2006Q1

REPORT INFORMATION
  Report Type: 
  Country: None (occurrence: None)
  Receive Date: 20060104
  Receipt Date: 20051201
  Transmission Date: 20060701
  Serious: Yes (Death)
  Sender: FDA-Public Use
  Company Number: AT-BRISTOL-MYERS SQUIBB COMPANY-13203054

PATIENT
  Age: 85 Year
  Sex: Male
  Weight: 68 kg

DRUGS (2)
  1. MAXIPIME [Suspect]
     Indication: ABDOMINAL INFECTION
     Dates: start: 20050929, end: 20051003
  2. METRONIDAZOLE [Concomitant]

REACTIONS (1)
  - HEPATIC FAILURE [None]
